FAERS Safety Report 7239913-4 (Version None)
Quarter: 2011Q1

REPORT INFORMATION
  Report Type: 
  Country: None (occurrence: None)
  Receive Date: 20110124
  Receipt Date: 20110112
  Transmission Date: 20110831
  Serious: Yes (Hospitalization, Disabling)
  Sender: FDA-Public Use
  Company Number: US-BIOGENIDEC-2010BI007965

PATIENT
  Age: 52 Year
  Sex: Female

DRUGS (5)
  1. TYSABRI [Suspect]
     Indication: MULTIPLE SCLEROSIS
     Route: 042
     Dates: start: 20080820, end: 20100310
  2. VALIUM [Concomitant]
     Route: 048
  3. TRILEPTAL [Concomitant]
     Route: 048
  4. LIPITOR [Concomitant]
     Route: 048
  5. BACLOFEN [Concomitant]
     Route: 048

REACTIONS (2)
  - INTERVERTEBRAL DISCITIS [None]
  - INTERVERTEBRAL DISC PROTRUSION [None]
